FAERS Safety Report 11359949 (Version 2)
Quarter: 2015Q3

REPORT INFORMATION
  Report Type: Report from Study
  Country: CA (occurrence: CA)
  Receive Date: 20150810
  Receipt Date: 20150901
  Transmission Date: 20151125
  Serious: Yes (Other)
  Sender: FDA-Public Use
  Company Number: CA-ROCHE-1150809

PATIENT
  Age: 77 Year
  Sex: Female
  Weight: 54 kg

DRUGS (15)
  1. ACTEMRA [Suspect]
     Active Substance: TOCILIZUMAB
     Route: 042
     Dates: start: 20140924
  2. COUMADIN [Suspect]
     Active Substance: WARFARIN SODIUM
     Indication: PRODUCT USED FOR UNKNOWN INDICATION
     Route: 065
  3. VITAMIN E [Concomitant]
     Active Substance: .ALPHA.-TOCOPHEROL
     Route: 065
  4. ATORVASTATIN CALCIUM. [Concomitant]
     Active Substance: ATORVASTATIN CALCIUM
     Route: 065
  5. FOLIC ACID. [Concomitant]
     Active Substance: FOLIC ACID
  6. METHOTREXATE [Concomitant]
     Active Substance: METHOTREXATE
     Route: 065
  7. ACTEMRA [Suspect]
     Active Substance: TOCILIZUMAB
     Dosage: UNKNOWN DOSE
     Route: 042
  8. REMICADE [Suspect]
     Active Substance: INFLIXIMAB
     Indication: PRODUCT USED FOR UNKNOWN INDICATION
     Route: 065
  9. AMLODIPINE [Concomitant]
     Active Substance: AMLODIPINE BESYLATE
     Route: 065
  10. ALENDRONATE [Concomitant]
     Active Substance: ALENDRONATE SODIUM
     Route: 065
  11. SYNTHROID [Concomitant]
     Active Substance: LEVOTHYROXINE SODIUM
     Route: 065
  12. ACTEMRA [Suspect]
     Active Substance: TOCILIZUMAB
     Indication: RHEUMATOID ARTHRITIS
     Dosage: RPAP DOSE
     Route: 042
     Dates: start: 20120926
  13. INDAPAMIDE. [Concomitant]
     Active Substance: INDAPAMIDE
     Route: 065
  14. BISOPROLOL [Concomitant]
     Active Substance: BISOPROLOL
     Route: 065
  15. BISOPROLOL [Concomitant]
     Active Substance: BISOPROLOL
     Route: 065

REACTIONS (24)
  - Scratch [Recovered/Resolved]
  - Heart rate irregular [Unknown]
  - Eye pain [Recovered/Resolved]
  - Toothache [Recovered/Resolved]
  - Oral pain [Recovered/Resolved]
  - Ocular discomfort [Recovered/Resolved]
  - Eye discharge [Unknown]
  - Arthralgia [Not Recovered/Not Resolved]
  - Wound secretion [Recovering/Resolving]
  - Pain [Not Recovered/Not Resolved]
  - Fall [Unknown]
  - Weight increased [Unknown]
  - Back pain [Not Recovered/Not Resolved]
  - Furuncle [Not Recovered/Not Resolved]
  - Body temperature decreased [Not Recovered/Not Resolved]
  - Conjunctival hyperaemia [Recovering/Resolving]
  - Wound [Not Recovered/Not Resolved]
  - Heart rate irregular [Not Recovered/Not Resolved]
  - Tooth fracture [Recovered/Resolved]
  - Mobility decreased [Not Recovered/Not Resolved]
  - Contusion [Not Recovered/Not Resolved]
  - Oral herpes [Recovered/Resolved]
  - Infusion related reaction [Unknown]
  - Oedema [Recovered/Resolved]

NARRATIVE: CASE EVENT DATE: 20121120
